FAERS Safety Report 23566396 (Version 1)
Quarter: 2024Q1

REPORT INFORMATION
  Report Type: Spontaneous
  Country: US (occurrence: US)
  Receive Date: 20240226
  Receipt Date: 20240226
  Transmission Date: 20240410
  Serious: No
  Sender: FDA-Public Use
  Company Number: US-TEVA-VS-3141830

PATIENT
  Age: 78 Year
  Sex: Male

DRUGS (3)
  1. CILOSTAZOL [Suspect]
     Active Substance: CILOSTAZOL
     Indication: Peripheral arterial occlusive disease
     Dosage: 1 PILL
     Route: 065
     Dates: end: 20231121
  2. CILOSTAZOL [Suspect]
     Active Substance: CILOSTAZOL
     Indication: Peripheral arterial occlusive disease
     Dosage: 2 PILLS
     Route: 065
     Dates: start: 202311
  3. PLAVIX [Concomitant]
     Active Substance: CLOPIDOGREL BISULFATE

REACTIONS (4)
  - Pain in extremity [Unknown]
  - Insomnia [Unknown]
  - Back pain [Unknown]
  - Myalgia [Not Recovered/Not Resolved]
